FAERS Safety Report 15534210 (Version 1)
Quarter: 2018Q4

REPORT INFORMATION
  Report Type: Spontaneous
  Country: US (occurrence: US)
  Receive Date: 20181019
  Receipt Date: 20181019
  Transmission Date: 20190205
  Serious: Yes (Life-Threatening, Hospitalization)
  Sender: FDA-Public Use
  Company Number: None

PATIENT
  Age: 52 Year
  Sex: Female
  Weight: 90 kg

DRUGS (2)
  1. EXENATIDE. [Suspect]
     Active Substance: EXENATIDE
     Indication: DIABETES MELLITUS
     Dosage: ?          OTHER FREQUENCY:EVERY 7 DAYS;?
     Route: 058
     Dates: start: 20181001, end: 20181016
  2. LINAGLIPTIN [Concomitant]
     Active Substance: LINAGLIPTIN
     Dates: start: 20170707

REACTIONS (1)
  - Pancreatitis [None]

NARRATIVE: CASE EVENT DATE: 20181017
